FAERS Safety Report 9887581 (Version 2)
Quarter: 2014Q2

REPORT INFORMATION
  Report Type: Spontaneous
  Country: GB (occurrence: GB)
  Receive Date: 20140211
  Receipt Date: 20140415
  Transmission Date: 20141212
  Serious: Yes (Hospitalization, Other)
  Sender: FDA-Public Use
  Company Number: GB-AMGEN-GBRSP2014009245

PATIENT
  Age: 61 Year
  Sex: Female

DRUGS (7)
  1. NEULASTA [Suspect]
     Indication: PROPHYLAXIS
     Dosage: 6 MG, ONE INJECTION
     Route: 058
     Dates: start: 20140122, end: 20140122
  2. TAXOTERE [Suspect]
     Indication: BREAST CANCER METASTATIC
     Dosage: UNK
     Route: 065
  3. 5-FU                               /00098801/ [Concomitant]
     Indication: BREAST CANCER METASTATIC
     Dosage: UNK
  4. EPIRUBICIN [Concomitant]
     Indication: BREAST CANCER METASTATIC
     Dosage: UNK
  5. CYCLOPHOSPHAMIDE [Concomitant]
     Indication: BREAST CANCER METASTATIC
     Dosage: UNK
  6. HYDROCORTISONE [Concomitant]
     Indication: HYPERSENSITIVITY
     Dosage: UNK
  7. PIRITON [Concomitant]
     Indication: HYPERSENSITIVITY
     Dosage: UNK

REACTIONS (5)
  - Chest pain [Recovered/Resolved]
  - Dyspnoea [Recovered/Resolved]
  - Swelling face [Recovered/Resolved]
  - Anaphylactic reaction [Recovered/Resolved]
  - Rash [Recovered/Resolved]
